FAERS Safety Report 20171647 (Version 3)
Quarter: 2025Q3

REPORT INFORMATION
  Report Type: Spontaneous
  Country: EU (occurrence: EU)
  Receive Date: 20211210
  Receipt Date: 20250806
  Transmission Date: 20251020
  Serious: Yes (Other)
  Sender: NOVARTIS
  Company Number: EU-NOVARTISPH-NVSC2021CZ264962

PATIENT
  Age: 70 Year
  Sex: Female

DRUGS (5)
  1. ELTROMBOPAG [Suspect]
     Active Substance: ELTROMBOPAG
     Indication: Aplastic anaemia
     Route: 065
  2. CYCLOSPORINE [Suspect]
     Active Substance: CYCLOSPORINE
     Indication: Aplastic anaemia
     Route: 065
     Dates: start: 2017
  3. NIFUROXAZIDE [Suspect]
     Active Substance: NIFUROXAZIDE
     Indication: Aplastic anaemia
     Route: 065
     Dates: start: 2017
  4. THYMOCYTE IMMUNE GLOBULIN NOS [Suspect]
     Active Substance: THYMOCYTE IMMUNE GLOBULIN NOS
     Indication: Aplastic anaemia
     Route: 065
     Dates: start: 2017
  5. THYROXINE [Concomitant]
     Active Substance: LEVOTHYROXINE
     Indication: Hypothyroidism
     Route: 065

REACTIONS (8)
  - Aplastic anaemia [Unknown]
  - Pneumonia pseudomonal [Recovered/Resolved]
  - Alpha haemolytic streptococcal infection [Recovered/Resolved]
  - Pseudomonas infection [Recovered/Resolved]
  - Septic shock [Recovered/Resolved]
  - Epstein-Barr virus infection reactivation [Recovered/Resolved]
  - Drug ineffective [Unknown]
  - Product use in unapproved indication [Unknown]

NARRATIVE: CASE EVENT DATE: 20170101
